FAERS Safety Report 23479246 (Version 1)
Quarter: 2024Q1

REPORT INFORMATION
  Report Type: Spontaneous
  Country: GB (occurrence: GB)
  Receive Date: 20240205
  Receipt Date: 20240205
  Transmission Date: 20240410
  Serious: Yes (Hospitalization, Disabling, Other)
  Sender: FDA-Public Use
  Company Number: None

PATIENT
  Age: 23 Year
  Sex: Male

DRUGS (1)
  1. LEVOFLOXACIN [Suspect]
     Active Substance: LEVOFLOXACIN
     Indication: Adverse drug reaction
     Route: 065
     Dates: start: 20180712, end: 20180719

REACTIONS (11)
  - Tendon pain [Recovering/Resolving]
  - Emotional poverty [Recovering/Resolving]
  - Rash [Recovered/Resolved]
  - Insomnia [Recovering/Resolving]
  - Vision blurred [Recovering/Resolving]
  - Cognitive disorder [Recovering/Resolving]
  - Dyspnoea [Recovering/Resolving]
  - Physical disability [Recovering/Resolving]
  - Pain [Recovering/Resolving]
  - Fatigue [Recovering/Resolving]
  - Headache [Recovering/Resolving]

NARRATIVE: CASE EVENT DATE: 20180712
